FAERS Safety Report 14109699 (Version 2)
Quarter: 2017Q4

REPORT INFORMATION
  Report Type: Spontaneous
  Country: US (occurrence: US)
  Receive Date: 20171020
  Receipt Date: 20171204
  Transmission Date: 20180321
  Serious: No
  Sender: FDA-Public Use
  Company Number: US-009507513-1710USA005626

PATIENT
  Age: 20 Year
  Sex: Female

DRUGS (1)
  1. NEXPLANON [Suspect]
     Active Substance: ETONOGESTREL
     Indication: CONTRACEPTION
     Dosage: 68 MG (ONE ROD) PER 3 YEARS
     Route: 059
     Dates: end: 2017

REACTIONS (3)
  - Metrorrhagia [Unknown]
  - Device breakage [Recovered/Resolved]
  - Device kink [Recovered/Resolved]
